FAERS Safety Report 5742295-8 (Version None)
Quarter: 2008Q2

REPORT INFORMATION
  Report Type: 
  Country: None (occurrence: None)
  Receive Date: 20080519
  Receipt Date: 20080513
  Transmission Date: 20081010
  Serious: Yes (Other)
  Sender: FDA-Public Use
  Company Number: PHHY2008CA07585

PATIENT
  Sex: Male

DRUGS (1)
  1. LAMISIL [Suspect]
     Route: 003

REACTIONS (9)
  - ERYTHEMA [None]
  - HYPERSENSITIVITY [None]
  - LACRIMATION INCREASED [None]
  - RHINORRHOEA [None]
  - SEASONAL ALLERGY [None]
  - SKIN BURNING SENSATION [None]
  - SKIN DEPIGMENTATION [None]
  - SNEEZING [None]
  - URTICARIA [None]
